FAERS Safety Report 9157121 (Version 1)
Quarter: 2013Q1

REPORT INFORMATION
  Report Type: Spontaneous
  Country: BR (occurrence: BR)
  Receive Date: 20130312
  Receipt Date: 20130312
  Transmission Date: 20140127
  Serious: Yes (Other)
  Sender: FDA-Public Use
  Company Number: BR-AMGEN-BRASP2013001355

PATIENT
  Age: 51 Year
  Sex: Female
  Weight: 92 kg

DRUGS (6)
  1. ENBREL [Suspect]
     Indication: PSORIATIC ARTHROPATHY
     Dosage: 50 MG, WEEKLY
     Route: 058
     Dates: start: 201211, end: 20121223
  2. PREDNISOLONE [Concomitant]
     Indication: LEUKOCYTOCLASTIC VASCULITIS
     Dosage: UNK
  3. PREDSIM [Concomitant]
     Indication: LEUKOCYTOCLASTIC VASCULITIS
     Dosage: UNK
     Dates: start: 200904
  4. CYMBALTA [Concomitant]
     Indication: LEUKOCYTOCLASTIC VASCULITIS
     Dosage: UNK
     Dates: start: 201102
  5. DAPSONE [Concomitant]
     Indication: LEUKOCYTOCLASTIC VASCULITIS
     Dosage: UNK
     Dates: start: 201002
  6. INDOMETHACIN                       /00003801/ [Concomitant]
     Indication: LEUKOCYTOCLASTIC VASCULITIS
     Dosage: UNK
     Dates: start: 201002

REACTIONS (2)
  - Cataract [Unknown]
  - Herpes zoster [Unknown]
